FAERS Safety Report 6859302-1 (Version None)
Quarter: 2010Q3

REPORT INFORMATION
  Report Type: 
  Country: None (occurrence: None)
  Receive Date: 20100719
  Receipt Date: 20080303
  Transmission Date: 20110219
  Serious: No
  Sender: FDA-Public Use
  Company Number: US-PFIZER INC-2008018093

PATIENT
  Sex: Female

DRUGS (1)
  1. CHANTIX [Suspect]
     Indication: SMOKING CESSATION THERAPY
     Dates: start: 20071001, end: 20080211

REACTIONS (5)
  - DEPRESSION [None]
  - FEAR [None]
  - MORBID THOUGHTS [None]
  - ROUTINE HEALTH MAINTENANCE [None]
  - URTICARIA [None]
